FAERS Safety Report 9132927 (Version 4)
Quarter: 2014Q2

REPORT INFORMATION
  Report Type: Spontaneous
  Country: US (occurrence: US)
  Receive Date: 20130301
  Receipt Date: 20140627
  Transmission Date: 20141212
  Serious: Yes (Death, Hospitalization, Other)
  Sender: FDA-Public Use
  Company Number: US-TEVA-389310USA

PATIENT
  Age: 69 Year
  Sex: Male
  Weight: 74 kg

DRUGS (13)
  1. TREANDA [Suspect]
     Indication: PLASMA CELL MYELOMA
     Dosage: DAY 1 AND 2, EVERY 4 WEEKS
     Route: 042
     Dates: start: 20110928, end: 20111026
  2. COMPAZINE [Concomitant]
     Dosage: 1 OR 2 Q 4-6 H PRN
  3. MS CONTIN [Concomitant]
     Dosage: Q 12 H
  4. DILAUDID [Concomitant]
     Indication: PAIN
     Dosage: Q 3 HR PRN
  5. SENOKOT [Concomitant]
     Dosage: BID
  6. NORVASC [Concomitant]
     Dosage: 5 MILLIGRAM DAILY;
  7. ZYLOPRIM [Concomitant]
     Dosage: Q 48 HR
  8. COLCHICINE [Concomitant]
     Dosage: 1.8 MILLIGRAM DAILY;
  9. NITROGLYCERIN [Concomitant]
     Indication: CHEST PAIN
     Dosage: PRN
     Route: 060
  10. ASPIRIN [Concomitant]
     Dosage: 81 MILLIGRAM DAILY;
  11. METOPROLOL [Concomitant]
     Dosage: 25 MILLIGRAM DAILY;
  12. DESONIDE [Concomitant]
     Dosage: BID PRN
  13. IMDUR [Concomitant]
     Dosage: 60 MILLIGRAM DAILY;

REACTIONS (4)
  - Angina pectoris [Recovered/Resolved]
  - Myocardial infarction [Unknown]
  - Pericarditis [Unknown]
  - Coronary artery disease [Fatal]
